FAERS Safety Report 4596909-9 (Version None)
Quarter: 2005Q1

REPORT INFORMATION
  Report Type: 
  Country: None (occurrence: None)
  Receive Date: 20050225
  Receipt Date: 20050215
  Transmission Date: 20050727
  Serious: Yes (Hospitalization)
  Sender: FDA-Public Use
  Company Number: 2005-02-0635

PATIENT
  Age: 30 Year
  Sex: Female

DRUGS (3)
  1. DIPROSONE [Suspect]
     Indication: EXANTHEM
     Dosage: TOP-DERM
     Route: 061
  2. DERMATOP OINTMENT [Concomitant]
  3. BETALOC [Concomitant]

REACTIONS (13)
  - ALANINE AMINOTRANSFERASE INCREASED [None]
  - ASPARTATE AMINOTRANSFERASE INCREASED [None]
  - DISEASE PROGRESSION [None]
  - DRUG INEFFECTIVE [None]
  - ENTEROCOCCAL INFECTION [None]
  - ESCHERICHIA INFECTION [None]
  - INFLAMMATION [None]
  - LYMPHOCYTE COUNT INCREASED [None]
  - NEUTROPHIL COUNT DECREASED [None]
  - PARAPSORIASIS [None]
  - PARASITE STOOL TEST POSITIVE [None]
  - SKIN NECROSIS [None]
  - SKIN ULCER [None]
